FAERS Safety Report 10486833 (Version 1)
Quarter: 2014Q4

REPORT INFORMATION
  Report Type: Spontaneous
  Country: IT (occurrence: IT)
  Receive Date: 20141001
  Receipt Date: 20141001
  Transmission Date: 20150528
  Serious: Yes (Other)
  Sender: FDA-Public Use
  Company Number: IT-ASTELLAS-2014EU012948

PATIENT
  Age: 53 Year
  Sex: Male

DRUGS (2)
  1. TACROLIMUS SYSTEMIC [Suspect]
     Active Substance: TACROLIMUS
     Indication: IMMUNOSUPPRESSION
     Dosage: 5 MG, DAILY
     Route: 048
  2. TACROLIMUS SYSTEMIC [Suspect]
     Active Substance: TACROLIMUS
     Dosage: 4 MG, DAILY
     Route: 048

REACTIONS (1)
  - Polymyositis [Recovered/Resolved]
